FAERS Safety Report 19559721 (Version 2)
Quarter: 2022Q3

REPORT INFORMATION
  Report Type: Report from Study
  Country: FR (occurrence: FR)
  Receive Date: 20210715
  Receipt Date: 20220907
  Transmission Date: 20221027
  Serious: No
  Sender: FDA-Public Use
  Company Number: FR-TAKEDA-2021TUS042072

PATIENT
  Age: 74 Year
  Sex: Female

DRUGS (17)
  1. TEDUGLUTIDE [Suspect]
     Active Substance: TEDUGLUTIDE
     Indication: Short-bowel syndrome
     Dosage: 0.053 MILLIGRAM, QD
     Route: 042
     Dates: start: 20160628, end: 20190711
  2. TEDUGLUTIDE [Suspect]
     Active Substance: TEDUGLUTIDE
     Indication: Short-bowel syndrome
     Dosage: 0.053 MILLIGRAM, QD
     Route: 042
     Dates: start: 20160628, end: 20190711
  3. TEDUGLUTIDE [Suspect]
     Active Substance: TEDUGLUTIDE
     Indication: Short-bowel syndrome
     Dosage: 0.053 MILLIGRAM, QD
     Route: 042
     Dates: start: 20160628, end: 20190711
  4. TEDUGLUTIDE [Suspect]
     Active Substance: TEDUGLUTIDE
     Indication: Short-bowel syndrome
     Dosage: 0.053 MILLIGRAM, QD
     Route: 042
     Dates: start: 20160628, end: 20190711
  5. TEDUGLUTIDE [Suspect]
     Active Substance: TEDUGLUTIDE
     Dosage: 3.6 MILLIGRAM, QD
     Route: 042
     Dates: start: 20190712, end: 20191209
  6. TEDUGLUTIDE [Suspect]
     Active Substance: TEDUGLUTIDE
     Dosage: 3.6 MILLIGRAM, QD
     Route: 042
     Dates: start: 20190712, end: 20191209
  7. TEDUGLUTIDE [Suspect]
     Active Substance: TEDUGLUTIDE
     Dosage: 3.6 MILLIGRAM, QD
     Route: 042
     Dates: start: 20190712, end: 20191209
  8. TEDUGLUTIDE [Suspect]
     Active Substance: TEDUGLUTIDE
     Dosage: 3.6 MILLIGRAM, QD
     Route: 042
     Dates: start: 20190712, end: 20191209
  9. TEDUGLUTIDE [Suspect]
     Active Substance: TEDUGLUTIDE
     Dosage: 3.4 MILLIGRAM, QD
     Route: 042
     Dates: start: 20191210
  10. TEDUGLUTIDE [Suspect]
     Active Substance: TEDUGLUTIDE
     Dosage: 3.4 MILLIGRAM, QD
     Route: 042
     Dates: start: 20191210
  11. TEDUGLUTIDE [Suspect]
     Active Substance: TEDUGLUTIDE
     Dosage: 3.4 MILLIGRAM, QD
     Route: 042
     Dates: start: 20191210
  12. TEDUGLUTIDE [Suspect]
     Active Substance: TEDUGLUTIDE
     Dosage: 3.4 MILLIGRAM, QD
     Route: 042
     Dates: start: 20191210
  13. FOSFOMYCIN TROMETHAMINE [Concomitant]
     Active Substance: FOSFOMYCIN TROMETHAMINE
     Indication: Prophylaxis
     Dosage: 1 INTERNATIONAL UNIT, 1/WEEK
     Route: 048
     Dates: start: 20200213
  14. FOSFOMYCIN TROMETHAMINE [Concomitant]
     Active Substance: FOSFOMYCIN TROMETHAMINE
     Indication: Urinary tract infection
  15. CLINDAMYCIN [Concomitant]
     Active Substance: CLINDAMYCIN
     Indication: Infection
     Dosage: 600 MILLIGRAM, TID
     Route: 048
     Dates: start: 20200205, end: 20200212
  16. PIPERACILLIN SODIUM\TAZOBACTAM SODIUM [Concomitant]
     Active Substance: PIPERACILLIN SODIUM\TAZOBACTAM SODIUM
     Indication: Infection
     Dosage: 4 UNK, TID
     Dates: start: 20200205, end: 20200212
  17. AMIKACIN [Concomitant]
     Active Substance: AMIKACIN
     Indication: Infection
     Dosage: 1.50 GRAM
     Route: 065
     Dates: start: 20200210, end: 20200212

REACTIONS (3)
  - Blood iron decreased [Recovered/Resolved]
  - Gastrointestinal tract mucosal discolouration [Recovered/Resolved]
  - Serum ferritin decreased [Recovered/Resolved]

NARRATIVE: CASE EVENT DATE: 20161213
